FAERS Safety Report 5862087-9 (Version None)
Quarter: 2008Q3

REPORT INFORMATION
  Report Type: 
  Country: None (occurrence: None)
  Receive Date: 20080828
  Receipt Date: 20080819
  Transmission Date: 20090109
  Serious: Yes (Other)
  Sender: FDA-Public Use
  Company Number: US-JNJFOC-20080706247

PATIENT
  Sex: Male
  Weight: 78.93 kg

DRUGS (7)
  1. REMICADE [Suspect]
     Route: 042
     Dates: end: 20080301
  2. REMICADE [Suspect]
     Indication: COLITIS ULCERATIVE
     Route: 042
     Dates: end: 20080301
  3. MERCAPTOPURINE [Concomitant]
     Indication: COLITIS ULCERATIVE
  4. ASACOL [Concomitant]
     Indication: COLITIS ULCERATIVE
  5. FOLIC ACID [Concomitant]
     Indication: COLITIS ULCERATIVE
  6. MULTI-VITAMIN [Concomitant]
     Indication: COLITIS ULCERATIVE
  7. BENADRYL [Concomitant]
     Indication: INSOMNIA

REACTIONS (1)
  - CARTILAGE INJURY [None]
